FAERS Safety Report 4576262-7 (Version None)
Quarter: 2005Q1

REPORT INFORMATION
  Report Type: 
  Country: None (occurrence: None)
  Receive Date: 20050207
  Receipt Date: 20050127
  Transmission Date: 20050727
  Serious: No
  Sender: FDA-Public Use
  Company Number: 2005-DE-00343GD

PATIENT
  Age: 80 Year
  Sex: Female

DRUGS (1)
  1. PROPRANOLOL [Suspect]

REACTIONS (2)
  - ATRIOVENTRICULAR BLOCK [None]
  - BUNDLE BRANCH BLOCK LEFT [None]
